FAERS Safety Report 6234310-2 (Version None)
Quarter: 2009Q2

REPORT INFORMATION
  Report Type: 
  Country: None (occurrence: None)
  Receive Date: 20090618
  Receipt Date: 20090610
  Transmission Date: 20091009
  Serious: Yes (Other)
  Sender: FDA-Public Use
  Company Number: TR-ABBOTT-09P-161-0578877-00

PATIENT
  Age: 58 Year
  Sex: Female

DRUGS (2)
  1. CLARITHROMYCIN [Suspect]
     Indication: PYELONEPHRITIS
  2. CEFEPIME [Suspect]
     Indication: PYELONEPHRITIS

REACTIONS (1)
  - STATUS EPILEPTICUS [None]
